FAERS Safety Report 25379051 (Version 1)
Quarter: 2025Q2

REPORT INFORMATION
  Report Type: Spontaneous
  Country: KR (occurrence: KR)
  Receive Date: 20250530
  Receipt Date: 20250530
  Transmission Date: 20250717
  Serious: Yes (Hospitalization)
  Sender: EISAI
  Company Number: KR-LEQ-SPO-25076

PATIENT
  Age: 65 Year
  Sex: Female
  Weight: 51 kg

DRUGS (2)
  1. LEQEMBI [Suspect]
     Active Substance: LECANEMAB-IRMB
     Indication: Dementia
  2. LEQEMBI [Suspect]
     Active Substance: LECANEMAB-IRMB

REACTIONS (3)
  - Brain abscess [Unknown]
  - Sepsis [Unknown]
  - CNS ventriculitis [Not Recovered/Not Resolved]
